FAERS Safety Report 4502494-X (Version None)
Quarter: 2004Q4

REPORT INFORMATION
  Report Type: 
  Country: None (occurrence: None)
  Receive Date: 20041112
  Receipt Date: 20041101
  Transmission Date: 20050328
  Serious: Yes (Other)
  Sender: FDA-Public Use
  Company Number: HQWYE192601NOV04

PATIENT
  Age: 36 Year
  Sex: Female

DRUGS (2)
  1. TRIQUILAR-21 (LEVONORGESTREL/ETHINYL ESTRADIOL) [Suspect]
     Indication: ORAL CONTRACEPTION
     Dosage: 1 TABLET 1X PER 1 DAY
     Route: 048
     Dates: start: 19900101, end: 20040722
  2. UNSPECIFIED ANTIBIOTIC (UNSPECIFIED ANTIBIOTIC) [Concomitant]

REACTIONS (5)
  - ABORTION THREATENED [None]
  - DRUG INEFFECTIVE [None]
  - UNINTENDED PREGNANCY [None]
  - VAGINAL HAEMORRHAGE [None]
  - VOMITING [None]
